FAERS Safety Report 10177168 (Version 1)
Quarter: 2014Q2

REPORT INFORMATION
  Report Type: Report from Study
  Country: JP (occurrence: JP)
  Receive Date: 20140516
  Receipt Date: 20140516
  Transmission Date: 20141212
  Serious: Yes (Other)
  Sender: FDA-Public Use
  Company Number: JP-VERTEX PHARMACEUTICALS INC-2014-002331

PATIENT
  Age: 52 Year
  Sex: Male

DRUGS (14)
  1. VX-950 (TELAPREVIR) [Suspect]
     Indication: CHRONIC HEPATITIS C
     Dosage: 2250 MG, QD
     Route: 048
     Dates: start: 20120705, end: 20120720
  2. VX-950 (TELAPREVIR) [Suspect]
     Dosage: 750 MG, QD
     Route: 048
     Dates: start: 20120720, end: 20120821
  3. VX-950 (TELAPREVIR) [Suspect]
     Dosage: 1000 MG, QD
     Route: 048
     Dates: start: 20120822, end: 20120829
  4. VX-950 (TELAPREVIR) [Suspect]
     Dosage: 750 MG, QD
     Route: 048
     Dates: start: 20120829, end: 20120925
  5. PEGINTERFERON ALFA-2B [Suspect]
     Indication: CHRONIC HEPATITIS C
     Dosage: 1.4 ?G/KG, QW
     Route: 058
     Dates: start: 20120705
  6. PEGINTERFERON ALFA-2B [Suspect]
     Dosage: 1.5 ?G/KG, QW
     Route: 058
     Dates: end: 20120919
  7. PEGINTERFERON ALFA-2B [Suspect]
     Dosage: 60 ?G, QW
     Route: 058
     Dates: start: 20120926, end: 20120926
  8. PEGINTERFERON ALFA-2B [Suspect]
     Dosage: 70 ?G, QW
     Route: 058
     Dates: start: 20121003
  9. RIBAVIRIN [Suspect]
     Indication: CHRONIC HEPATITIS C
     Dosage: 600 MG, QD
     Route: 048
     Dates: start: 20120705, end: 20120720
  10. RIBAVIRIN [Suspect]
     Dosage: 200 MG, QD
     Route: 048
     Dates: start: 20120720, end: 20121219
  11. BIOFERMIN [Concomitant]
     Dosage: 3 DF, UNK
     Route: 048
     Dates: start: 20120815, end: 20121024
  12. ALLEGRA [Concomitant]
     Dosage: 120 MG, UNK
     Route: 048
     Dates: start: 20120711, end: 20120719
  13. ANTEBATE [Concomitant]
     Dosage: UNK
     Route: 061
     Dates: start: 20120709, end: 20120719
  14. MUCOSTA [Concomitant]
     Dosage: 300 MG, UNK
     Route: 048
     Dates: start: 20120709, end: 20121224

REACTIONS (1)
  - White blood cell count decreased [Recovered/Resolved]
